FAERS Safety Report 9195955 (Version 1)
Quarter: 2013Q1

REPORT INFORMATION
  Report Type: Report from Study
  Country: CA (occurrence: CA)
  Receive Date: 20130328
  Receipt Date: 20130328
  Transmission Date: 20140127
  Serious: Yes (Hospitalization)
  Sender: FDA-Public Use
  Company Number: CA-JNJFOC-20130311742

PATIENT
  Age: 59 Year
  Sex: Female
  Weight: 74.84 kg

DRUGS (1)
  1. REMICADE [Suspect]
     Indication: COLITIS ULCERATIVE
     Route: 042
     Dates: start: 20130109, end: 20130318

REACTIONS (5)
  - Myocardial infarction [Unknown]
  - Septic shock [Unknown]
  - Pneumonia [Unknown]
  - Local swelling [Unknown]
  - Drug ineffective [Unknown]
